FAERS Safety Report 21880023 (Version 1)
Quarter: 2023Q1

REPORT INFORMATION
  Report Type: Report from Study
  Country: AE (occurrence: None)
  Receive Date: 20230118
  Receipt Date: 20230118
  Transmission Date: 20230417
  Serious: Yes (Hospitalization)
  Sender: FDA-Public Use
  Company Number: 2023A006667

PATIENT
  Age: 44 Year
  Sex: Female
  Weight: 111 kg

DRUGS (1)
  1. CILGAVIMAB\TIXAGEVIMAB [Suspect]
     Active Substance: CILGAVIMAB\TIXAGEVIMAB
     Indication: COVID-19
     Dosage: SINGLE DOSE OF AZD7442. THE DOSE WILL BE ADMINISTERED AS 2 SEPARATE SEQUENTIAL IM INJECTIONS (ONE...
     Route: 030

REACTIONS (1)
  - Cancer pain [Recovered/Resolved]

NARRATIVE: CASE EVENT DATE: 20221005
